FAERS Safety Report 7577538-1 (Version None)
Quarter: 2011Q2

REPORT INFORMATION
  Report Type: 
  Country: None (occurrence: None)
  Receive Date: 20110628
  Receipt Date: 20110621
  Transmission Date: 20111010
  Serious: Yes (Other)
  Sender: FDA-Public Use
  Company Number: PT-BRISTOL-MYERS SQUIBB COMPANY-15848146

PATIENT
  Age: 46 Year
  Sex: Female

DRUGS (3)
  1. HYDROXYUREA [Suspect]
     Dates: end: 20010101
  2. INTERFERON ALFA [Suspect]
     Dates: end: 19990101
  3. CYTARABINE [Suspect]

REACTIONS (2)
  - SKIN ULCER [None]
  - COOMBS NEGATIVE HAEMOLYTIC ANAEMIA [None]
